FAERS Safety Report 14948641 (Version 3)
Quarter: 2018Q2

REPORT INFORMATION
  Report Type: Report from Study
  Country: US (occurrence: US)
  Receive Date: 20180529
  Receipt Date: 20180625
  Transmission Date: 20180711
  Serious: Yes (Hospitalization)
  Sender: FDA-Public Use
  Company Number: US-MYLANLABS-2018M1033877

PATIENT
  Sex: Male
  Weight: 61 kg

DRUGS (4)
  1. ABIRATERONE ACETATE. [Suspect]
     Active Substance: ABIRATERONE ACETATE
     Indication: PROSTATE CANCER
     Dosage: 1000 MG, QD
     Route: 048
     Dates: start: 20160329, end: 20180402
  2. PREDNISONE. [Suspect]
     Active Substance: PREDNISONE
     Indication: PROSTATE CANCER
     Dosage: 10 MG, QD
     Route: 048
     Dates: start: 20160329, end: 20180402
  3. PREDNISONE. [Suspect]
     Active Substance: PREDNISONE
     Dosage: 5 MG, BID
     Route: 048
     Dates: start: 20160329, end: 20180402
  4. ENZALUTAMIDE [Suspect]
     Active Substance: ENZALUTAMIDE
     Indication: PROSTATE CANCER
     Dosage: 160 MG, QD
     Route: 048
     Dates: start: 20160329, end: 20180402

REACTIONS (5)
  - Abdominal pain [Recovered/Resolved]
  - Cardiac failure [Recovering/Resolving]
  - Lipase increased [Recovering/Resolving]
  - Brain natriuretic peptide abnormal [Unknown]
  - Disease progression [Unknown]

NARRATIVE: CASE EVENT DATE: 20180410
